FAERS Safety Report 9293818 (Version 1)
Quarter: 2013Q2

REPORT INFORMATION
  Report Type: Spontaneous
  Country: US (occurrence: US)
  Receive Date: 20130516
  Receipt Date: 20130516
  Transmission Date: 20140414
  Serious: Yes (Other)
  Sender: FDA-Public Use
  Company Number: US-MILLENNIUM PHARMACEUTICALS, INC.-2013-03634

PATIENT
  Sex: Female

DRUGS (10)
  1. VELCADE [Suspect]
     Indication: PLASMA CELL MYELOMA
     Dosage: UNK
     Route: 065
  2. REVLIMID [Suspect]
     Indication: PLASMA CELL MYELOMA
     Dosage: 25 MG, CYCLIC
     Route: 048
     Dates: start: 201104
  3. REVLIMID [Suspect]
     Dosage: 25 MG, CYCLIC
     Route: 048
     Dates: start: 201111
  4. REVLIMID [Suspect]
     Dosage: 25 MG, CYCLIC
     Route: 048
     Dates: start: 201201
  5. REVLIMID [Suspect]
     Dosage: 25 MG, CYCLIC
     Route: 048
     Dates: start: 201204
  6. REVLIMID [Suspect]
     Dosage: 25 MG, CYCLIC
     Route: 048
     Dates: start: 201209
  7. REVLIMID [Suspect]
     Dosage: 25 MG, CYCLIC
     Route: 048
     Dates: start: 20121114, end: 201302
  8. CYTOXAN [Suspect]
     Indication: PRODUCT USED FOR UNKNOWN INDICATION
     Route: 065
  9. ADVIL                              /00109201/ [Concomitant]
     Indication: PRODUCT USED FOR UNKNOWN INDICATION
  10. VITAMIN B12                        /00056201/ [Concomitant]
     Indication: PRODUCT USED FOR UNKNOWN INDICATION

REACTIONS (3)
  - Drug dose omission [Recovered/Resolved]
  - White blood cell count decreased [Unknown]
  - Full blood count decreased [Unknown]
